FAERS Safety Report 7153958-4 (Version None)
Quarter: 2010Q4

REPORT INFORMATION
  Report Type: 
  Country: None (occurrence: None)
  Receive Date: 20101213
  Receipt Date: 20101202
  Transmission Date: 20110411
  Serious: Yes (Hospitalization)
  Sender: FDA-Public Use
  Company Number: ES-JNJCH-2010028131

PATIENT
  Age: 21 Month
  Sex: Male

DRUGS (6)
  1. CETIRIZINE HYDROCHLORIDE [Suspect]
     Indication: PRODUCT USED FOR UNKNOWN INDICATION
     Dosage: TEXT:UNKNOWN
     Route: 065
  2. LEVOCETIRIZINE DIHYDROCHLORIDE [Suspect]
     Indication: PRODUCT USED FOR UNKNOWN INDICATION
     Dosage: TEXT:UNKNOWN
     Route: 065
  3. RANITIDINE [Suspect]
     Indication: PRODUCT USED FOR UNKNOWN INDICATION
     Dosage: TEXT:UNKNOWN
     Route: 065
  4. DEXCHLORPHENIRAMINE MALEATE [Suspect]
     Indication: PRODUCT USED FOR UNKNOWN INDICATION
     Dosage: TEXT:UNKNOWN
     Route: 065
  5. CROMOLYN SODIUM [Suspect]
     Indication: PRODUCT USED FOR UNKNOWN INDICATION
     Dosage: TEXT:UNKNOWN
     Route: 048
  6. CROMOLYN SODIUM [Suspect]
     Dosage: TEXT:UNKNOWN
     Route: 061

REACTIONS (6)
  - CONDITION AGGRAVATED [None]
  - DERMATITIS BULLOUS [None]
  - DIFFUSE CUTANEOUS MASTOCYTOSIS [None]
  - FLUSHING [None]
  - HYPOTONIA [None]
  - SOMNOLENCE [None]
